FAERS Safety Report 9115180 (Version 1)
Quarter: 2013Q1

REPORT INFORMATION
  Report Type: Spontaneous
  Country: US (occurrence: None)
  Receive Date: 20130128
  Receipt Date: 20130128
  Transmission Date: 20140127
  Serious: Yes (Other)
  Sender: FDA-Public Use
  Company Number: 2013LO000717/PC6801759

PATIENT
  Sex: Female

DRUGS (1)
  1. EFFACLAR [Suspect]
     Indication: ACNE
     Route: 061
     Dates: start: 20121227, end: 20130105

REACTIONS (10)
  - Anaphylactic shock [None]
  - Hypersensitivity [None]
  - Erythema [None]
  - Oedema [None]
  - Urticaria [None]
  - Chest discomfort [None]
  - Dyspnoea [None]
  - Skin discolouration [None]
  - Application site pain [None]
  - Heart rate increased [None]
